FAERS Safety Report 11584708 (Version 3)
Quarter: 2015Q4

REPORT INFORMATION
  Report Type: Report from Study
  Country: SE (occurrence: SE)
  Receive Date: 20151001
  Receipt Date: 20151207
  Transmission Date: 20160304
  Serious: Yes (Death, Hospitalization)
  Sender: FDA-Public Use
  Company Number: SE-BAYER-2015-428296

PATIENT
  Age: 69 Year
  Sex: Male
  Weight: 89 kg

DRUGS (32)
  1. DOXORUBICIN [Concomitant]
     Active Substance: DOXORUBICIN
     Dosage: 4 TACE TREATMENTS WITH 150 MG, NO LIPIODOL AND EMBOLIZATION AGENT USED
  2. BACTRIM-FORTE [Concomitant]
     Active Substance: SULFAMETHOXAZOLE\TRIMETHOPRIM
     Indication: INFECTION PROPHYLAXIS
     Dosage: DAILY DOSE 1 DF
     Dates: start: 20141007, end: 20141008
  3. PRIMPERAN [Concomitant]
     Active Substance: METOCLOPRAMIDE HYDROCHLORIDE
     Dosage: DAILY DOSE 10 MG
     Dates: start: 20141127, end: 20141204
  4. PROPAVAN [Concomitant]
     Active Substance: PROPIOMAZINE
     Dosage: DAILY DOSE 25 MG
     Dates: start: 20150110
  5. OXYNORM [Concomitant]
     Active Substance: OXYCODONE HYDROCHLORIDE
     Indication: PAIN PROPHYLAXIS
     Dosage: DAILY DOSE 5 MG
     Dates: start: 20141201, end: 20141208
  6. OMEPRAZOL [Concomitant]
     Active Substance: OMEPRAZOLE
     Dosage: DAILY DOSE 20 MG
     Dates: start: 20140822
  7. OMEPRAZOL [Concomitant]
     Active Substance: OMEPRAZOLE
     Dosage: DAILY DOSE 20 MG
     Dates: start: 20150413
  8. BACTRIM [Concomitant]
     Active Substance: SULFAMETHOXAZOLE\TRIMETHOPRIM
     Indication: INFECTION PROPHYLAXIS
     Dosage: DAILY DOSE 1 DF
     Dates: start: 20150401, end: 20150402
  9. SORAFENIB [Suspect]
     Active Substance: SORAFENIB
     Indication: HEPATOCELLULAR CARCINOMA
     Dosage: DAILY DOSE 800 MG
     Dates: start: 20150525, end: 20150608
  10. BETAPRED [Concomitant]
     Active Substance: BETAMETHASONE SODIUM PHOSPHATE
     Dosage: DAILY DOSE 2 MG
     Dates: start: 20141007, end: 20141007
  11. BACTRIM [Concomitant]
     Active Substance: SULFAMETHOXAZOLE\TRIMETHOPRIM
     Indication: INFECTION PROPHYLAXIS
     Dosage: DAILY DOSE 1 DF
     Dates: start: 20141127, end: 20141127
  12. OXYNORM [Concomitant]
     Active Substance: OXYCODONE HYDROCHLORIDE
     Indication: PAIN PROPHYLAXIS
     Dosage: DAILY DOSE 5 MG
     Dates: start: 20150109, end: 20150116
  13. BACTRIM-FORTE [Concomitant]
     Active Substance: SULFAMETHOXAZOLE\TRIMETHOPRIM
     Indication: INFECTION PROPHYLAXIS
     Dosage: DAILY DOSE 1 DF
     Dates: start: 20141007, end: 20141008
  14. PRIMPERAN [Concomitant]
     Active Substance: METOCLOPRAMIDE HYDROCHLORIDE
     Dosage: DAILY DOSE 20 MG
     Dates: start: 20141006, end: 20141007
  15. OXYNORM [Concomitant]
     Active Substance: OXYCODONE HYDROCHLORIDE
     Indication: PAIN PROPHYLAXIS
     Dosage: DAILY DOSE 10 MG
     Dates: start: 20150401
  16. SORAFENIB [Suspect]
     Active Substance: SORAFENIB
     Indication: HEPATOCELLULAR CARCINOMA
     Dosage: DAILY DOSE 400 MG
     Dates: start: 20150505
  17. BETAPRED [Concomitant]
     Active Substance: BETAMETHASONE SODIUM PHOSPHATE
     Dosage: DAILY DOSE 4 MG
     Dates: start: 20150205, end: 20150206
  18. PRIMPERAN [Concomitant]
     Active Substance: METOCLOPRAMIDE HYDROCHLORIDE
     Dosage: DAILY DOSE 20 MG
     Dates: start: 20150401, end: 20150403
  19. PARACETAMOL [Concomitant]
     Active Substance: ACETAMINOPHEN
     Dosage: UNK
  20. OXASCAND [Concomitant]
     Active Substance: OXAZEPAM
     Dosage: UNK
     Dates: start: 20150401
  21. SERTRALINE [Concomitant]
     Active Substance: SERTRALINE HYDROCHLORIDE
     Dosage: DAILY DOSE 100 MG
     Dates: start: 2004
  22. BETAPRED [Concomitant]
     Active Substance: BETAMETHASONE SODIUM PHOSPHATE
     Dosage: DAILY DOSE 8 MG
     Dates: start: 20150401, end: 20150402
  23. BACTRIM [Concomitant]
     Active Substance: SULFAMETHOXAZOLE\TRIMETHOPRIM
     Indication: INFECTION PROPHYLAXIS
     Dosage: DAILY DOSE 800 MG
     Dates: start: 20150205, end: 20150206
  24. PARACETAMOL [Concomitant]
     Active Substance: ACETAMINOPHEN
     Dosage: DAILY DOSE 2 G
     Dates: start: 20141127
  25. PARACETAMOL [Concomitant]
     Active Substance: ACETAMINOPHEN
     Dosage: DAILY DOSE 4 G
     Dates: start: 20150401, end: 20150402
  26. STESOLID [Concomitant]
     Active Substance: DIAZEPAM
     Dosage: DAILY DOSE 5 MG
     Dates: start: 20141204, end: 20150104
  27. ZOFRAN [Concomitant]
     Active Substance: ONDANSETRON HYDROCHLORIDE
     Dosage: DAILY DOSE 4 MG
     Dates: start: 20141127, end: 20141128
  28. BETAPRED [Concomitant]
     Active Substance: BETAMETHASONE SODIUM PHOSPHATE
     Dosage: DAILY DOSE 10 MG
     Dates: start: 20141006, end: 20141006
  29. BETAPRED [Concomitant]
     Active Substance: BETAMETHASONE SODIUM PHOSPHATE
     Dosage: DAILY DOSE 8 MG
     Dates: start: 20041127, end: 20141127
  30. ALVEDON [Concomitant]
     Active Substance: ACETAMINOPHEN
     Dosage: DAILY DOSE 1 G
     Dates: start: 20141006, end: 20141007
  31. ZOPIKLON [Concomitant]
     Active Substance: ZOPICLONE
     Dosage: DAILY DOSE 5 MG
     Dates: start: 20141127
  32. SALSYVASE [Concomitant]
     Indication: PROPHYLAXIS
     Dosage: UNK
     Dates: start: 20150505

REACTIONS (3)
  - Pharyngeal abscess [Recovered/Resolved]
  - Portal vein thrombosis [Not Recovered/Not Resolved]
  - Hepatocellular carcinoma [Fatal]

NARRATIVE: CASE EVENT DATE: 20150615
